FAERS Safety Report 10356255 (Version 2)
Quarter: 2014Q4

REPORT INFORMATION
  Report Type: Spontaneous
  Country: US (occurrence: US)
  Receive Date: 20140801
  Receipt Date: 20141103
  Transmission Date: 20150528
  Serious: Yes (Other)
  Sender: FDA-Public Use
  Company Number: US-BRISTOL-MYERS SQUIBB COMPANY-21232996

PATIENT
  Age: 56 Year
  Sex: Female
  Weight: 69.4 kg

DRUGS (10)
  1. PROTONIX [Concomitant]
     Active Substance: PANTOPRAZOLE SODIUM
  2. COUMADIN [Suspect]
     Active Substance: WARFARIN SODIUM
     Dates: start: 1990
  3. FOLIC ACID. [Concomitant]
     Active Substance: FOLIC ACID
  4. BIOTIN [Concomitant]
     Active Substance: BIOTIN
  5. VESICARE [Concomitant]
     Active Substance: SOLIFENACIN SUCCINATE
  6. WELLBUTRIN [Concomitant]
     Active Substance: BUPROPION HYDROCHLORIDE
  7. VITAMIN B12 [Concomitant]
     Active Substance: CYANOCOBALAMIN
  8. LEXAPRO [Concomitant]
     Active Substance: ESCITALOPRAM OXALATE
  9. MULTIVITAMIN [Concomitant]
     Active Substance: VITAMINS
  10. CYANOCOBALAMIN. [Concomitant]
     Active Substance: CYANOCOBALAMIN

REACTIONS (3)
  - Cerebrovascular accident [Unknown]
  - Aortic valve replacement [Unknown]
  - Aortic aneurysm [Unknown]

NARRATIVE: CASE EVENT DATE: 2008
